FAERS Safety Report 17440496 (Version 1)
Quarter: 2020Q1

REPORT INFORMATION
  Report Type: Spontaneous
  Country: US (occurrence: US)
  Receive Date: 20200220
  Receipt Date: 20200220
  Transmission Date: 20200409
  Serious: Yes (Hospitalization)
  Sender: FDA-Public Use
  Company Number: None

PATIENT
  Age: 65 Year
  Sex: Female

DRUGS (4)
  1. IMATINIB. [Suspect]
     Active Substance: IMATINIB MESYLATE
     Route: 048
  2. METOCLOPRAM [Concomitant]
     Active Substance: METOCLOPRAMIDE
  3. IRON [Concomitant]
     Active Substance: IRON
  4. FISH OIL [Concomitant]
     Active Substance: FISH OIL

REACTIONS (1)
  - Pancreaticoduodenectomy [None]

NARRATIVE: CASE EVENT DATE: 20200205
